FAERS Safety Report 9637436 (Version 1)
Quarter: 2013Q4

REPORT INFORMATION
  Report Type: Spontaneous
  Country: US (occurrence: None)
  Receive Date: 20131018
  Receipt Date: 20131018
  Transmission Date: 20140711
  Serious: Yes (Hospitalization)
  Sender: FDA-Public Use
  Company Number: ALK-2013-002056

PATIENT
  Sex: Male

DRUGS (1)
  1. VIVITROL (VIVITROL_NDA) INJECTION, 380MG [Suspect]
     Indication: DRUG DEPENDENCE
     Route: 030
     Dates: start: 20130928, end: 20130928

REACTIONS (8)
  - Hallucination [None]
  - Chest pain [None]
  - Abdominal pain upper [None]
  - Vision blurred [None]
  - Affect lability [None]
  - Hepatic enzyme abnormal [None]
  - Vomiting [None]
  - Diarrhoea [None]
